FAERS Safety Report 14372203 (Version 3)
Quarter: 2018Q2

REPORT INFORMATION
  Report Type: Spontaneous
  Country: BR (occurrence: BR)
  Receive Date: 20180110
  Receipt Date: 20180518
  Transmission Date: 20180711
  Serious: Yes (Hospitalization, Other)
  Sender: FDA-Public Use
  Company Number: BR-ABBVIE-18P-020-2217861-00

PATIENT
  Age: 80 Year
  Sex: Male
  Weight: 70 kg

DRUGS (15)
  1. DEPAKOTE ER [Suspect]
     Active Substance: DIVALPROEX SODIUM
     Indication: MEMORY IMPAIRMENT
     Dosage: DAILY DOSE: 1 TABLET; AT NIGHT
     Route: 048
  2. COMPLEX B [Concomitant]
     Active Substance: CALCIUM PANTOTHENATE\CYANOCOBALAMIN\NIACINAMIDE\PYRIDOXINE HYDROCHLORIDE\RIBOFLAVIN\THIAMINE MONONITRATE
     Indication: PRODUCT USED FOR UNKNOWN INDICATION
  3. DIAMICRON [Concomitant]
     Active Substance: GLICLAZIDE
     Indication: DIABETES MELLITUS
     Route: 048
  4. DEPAKOTE ER [Suspect]
     Active Substance: DIVALPROEX SODIUM
     Dosage: WEEKLY DOSE: 2 TABLETS PER WEEK
     Route: 048
     Dates: start: 2018, end: 2018
  5. MILGAMMA [Concomitant]
     Active Substance: VITAMIN B
     Indication: MYOSITIS
     Route: 048
  6. ORGANONEURO CEREBRAL [Concomitant]
     Indication: PRODUCT USED FOR UNKNOWN INDICATION
  7. NUTREM [Concomitant]
     Indication: VITAMIN SUPPLEMENTATION
  8. DEPAKOTE ER [Suspect]
     Active Substance: DIVALPROEX SODIUM
     Dosage: WEEKLY DOSE: 1 TABLETS PER WEEK
     Route: 048
     Dates: start: 2018, end: 201804
  9. COGLIVE [Concomitant]
     Indication: MEMORY IMPAIRMENT
  10. SIMVASTATIN. [Concomitant]
     Active Substance: SIMVASTATIN
     Indication: PRODUCT USED FOR UNKNOWN INDICATION
  11. ROSUVASTATIN CALCIUM. [Concomitant]
     Active Substance: ROSUVASTATIN CALCIUM
     Indication: BLOOD CHOLESTEROL INCREASED
     Dosage: DAILY DOSE: 1 TABLET, AT NIGHT
     Route: 048
  12. DIAMICRON [Concomitant]
     Active Substance: GLICLAZIDE
     Indication: PRODUCT USED FOR UNKNOWN INDICATION
  13. ORGANONEURO CEREBRAL [Concomitant]
     Indication: CEREBRAL DISORDER
     Dosage: DAILY DOSE: 3 TABLET; (1 TABLET IN THE MORNING/AT THE AFTERNOON/AT NIGHT)
     Route: 048
  14. DEPAKOTE ER [Suspect]
     Active Substance: DIVALPROEX SODIUM
     Dosage: WEEKLY DOSE: 3 TABLETS PER WEEK
     Route: 048
     Dates: end: 2018
  15. MILGAMMA [Concomitant]
     Active Substance: VITAMIN B
     Indication: NEUROPATHY PERIPHERAL

REACTIONS (15)
  - Prostate cancer [Not Recovered/Not Resolved]
  - Speech disorder [Recovered/Resolved]
  - Senile dementia [Not Recovered/Not Resolved]
  - Gait inability [Recovered/Resolved]
  - Off label use [Unknown]
  - Myocardial infarction [Unknown]
  - Weight decreased [Recovering/Resolving]
  - Feeling abnormal [Recovered/Resolved]
  - Blood sodium decreased [Recovered/Resolved]
  - Neuropathy peripheral [Not Recovered/Not Resolved]
  - Dysuria [Not Recovered/Not Resolved]
  - Tremor [Recovered/Resolved]
  - Product use in unapproved indication [Unknown]
  - Drug ineffective [Not Recovered/Not Resolved]
  - Metabolic disorder [Not Recovered/Not Resolved]

NARRATIVE: CASE EVENT DATE: 2017
